FAERS Safety Report 24686323 (Version 2)
Quarter: 2025Q2

REPORT INFORMATION
  Report Type: Spontaneous
  Country: CN (occurrence: CN)
  Receive Date: 20241202
  Receipt Date: 20250608
  Transmission Date: 20250717
  Serious: Yes (Other)
  Sender: COHERUS
  Company Number: CN-SHANGHAI JUNSHI BIOSCIENCES CO., LTD.-CN2024012197

PATIENT

DRUGS (2)
  1. TORIPALIMAB [Suspect]
     Active Substance: TORIPALIMAB
     Indication: Triple negative breast cancer
     Dates: start: 20240826, end: 20241101
  2. ERIBULIN [Concomitant]
     Active Substance: ERIBULIN
     Indication: Triple negative breast cancer
     Dates: start: 20240826, end: 20241101

REACTIONS (2)
  - Myelosuppression [Unknown]
  - Rash [Unknown]
